FAERS Safety Report 4444837-1 (Version None)
Quarter: 2004Q3

REPORT INFORMATION
  Report Type: 
  Country: None (occurrence: None)
  Receive Date: 20040909
  Receipt Date: 20040831
  Transmission Date: 20050211
  Serious: Yes (Hospitalization)
  Sender: FDA-Public Use
  Company Number: ES-BRISTOL-MYERS SQUIBB COMPANY-12687737

PATIENT
  Age: 43 Year
  Sex: Male

DRUGS (2)
  1. VIDEX [Suspect]
     Indication: HIV INFECTION
     Route: 048
  2. ALCOHOL [Suspect]
     Dosage: BEER

REACTIONS (1)
  - PANCREATITIS [None]
